FAERS Safety Report 9109639 (Version 3)
Quarter: 2013Q2

REPORT INFORMATION
  Report Type: Spontaneous
  Country: JP (occurrence: JP)
  Receive Date: 20130222
  Receipt Date: 20130417
  Transmission Date: 20140414
  Serious: No
  Sender: FDA-Public Use
  Company Number: JP-BRISTOL-MYERS SQUIBB COMPANY-17381864

PATIENT
  Age: 48 Year
  Sex: Male
  Weight: 72 kg

DRUGS (1)
  1. BARACLUDE TABS 0.5 MG [Suspect]
     Indication: CHRONIC HEPATITIS B
     Dosage: DOSE REDUCED ON 11-JAN-2013
     Route: 048
     Dates: start: 20121201, end: 20130213

REACTIONS (2)
  - Dizziness [Unknown]
  - Headache [Unknown]
